FAERS Safety Report 9279227 (Version 1)
Quarter: 2013Q2

REPORT INFORMATION
  Report Type: Spontaneous
  Country: US (occurrence: US)
  Receive Date: 20130508
  Receipt Date: 20130508
  Transmission Date: 20140414
  Serious: Yes (Other)
  Sender: FDA-Public Use
  Company Number: CHPA2013US007594

PATIENT
  Age: 55 Year
  Sex: Female

DRUGS (3)
  1. MYOFLEX ANALGESIC CREME [Suspect]
     Indication: RESTLESS LEGS SYNDROME
     Dosage: LITTLE BIT AS NEEDED
     Route: 061
  2. MYOFLEX ANALGESIC CREME [Suspect]
     Indication: MUSCLE SPASMS
  3. MYOFLEX ANALGESIC CREME [Suspect]
     Indication: PAIN

REACTIONS (7)
  - Restless legs syndrome [Not Recovered/Not Resolved]
  - Pain [Not Recovered/Not Resolved]
  - Muscle spasms [Not Recovered/Not Resolved]
  - Disease recurrence [Not Recovered/Not Resolved]
  - Therapeutic response unexpected [Unknown]
  - Off label use [Unknown]
  - Expired drug administered [Unknown]
